FAERS Safety Report 25235783 (Version 1)
Quarter: 2025Q2

REPORT INFORMATION
  Report Type: Spontaneous
  Country: US (occurrence: US)
  Receive Date: 20250424
  Receipt Date: 20250424
  Transmission Date: 20250717
  Serious: No
  Sender: GLAXOSMITHKLINE
  Company Number: US-GSK-US2025040781

PATIENT
  Age: 76 Year
  Sex: Female

DRUGS (1)
  1. TRELEGY ELLIPTA [Suspect]
     Active Substance: FLUTICASONE FUROATE\UMECLIDINIUM BROMIDE\VILANTEROL TRIFENATATE
     Indication: Asthma
     Dosage: UNK, QD, 200
     Route: 055
     Dates: start: 202101

REACTIONS (2)
  - Dysphonia [Unknown]
  - Sinus disorder [Unknown]

NARRATIVE: CASE EVENT DATE: 20250404
